FAERS Safety Report 12765788 (Version 1)
Quarter: 2016Q3

REPORT INFORMATION
  Report Type: Spontaneous
  Country: US (occurrence: US)
  Receive Date: 20160920
  Receipt Date: 20160920
  Transmission Date: 20161109
  Serious: Yes (Other)
  Sender: FDA-Public Use
  Company Number: None

PATIENT
  Age: 72 Year
  Sex: Female

DRUGS (1)
  1. MACITENTAN [Suspect]
     Active Substance: MACITENTAN

REACTIONS (6)
  - Blood bilirubin increased [None]
  - Treatment noncompliance [None]
  - Ascites [None]
  - Gallbladder enlargement [None]
  - Splenic vein thrombosis [None]
  - Oedema peripheral [None]

NARRATIVE: CASE EVENT DATE: 20160608
